FAERS Safety Report 15526867 (Version 1)
Quarter: 2020Q3

REPORT INFORMATION
  Report Type: Spontaneous
  Country: GB (occurrence: FR)
  Receive Date: 20181018
  Receipt Date: 20181018
  Transmission Date: 20201105
  Serious: Yes (Other)
  Sender: FDA-Public Use
  Company Number: FR-FRESENIUS KABI-FK201810642

PATIENT
  Age: 66 Year
  Sex: Female
  Weight: 72 kg

DRUGS (5)
  1. PROPOFOL PANPHARMA [Suspect]
     Active Substance: PROPOFOL
     Indication: ANAESTHESIA
     Route: 042
     Dates: start: 20180910, end: 20180910
  2. ULTIVA [Suspect]
     Active Substance: REMIFENTANIL HYDROCHLORIDE
     Indication: PAIN
     Dosage: 8.5 NG/ML
     Route: 042
     Dates: start: 20180910, end: 20180910
  3. CISATRACURIUM MYLAN [Suspect]
     Active Substance: CISATRACURIUM
     Indication: ANAESTHESIA
     Route: 042
     Dates: start: 20180910, end: 20180910
  4. ROPIVACAINHYDROCHLORID KABI 2 MG / ML [Suspect]
     Active Substance: ROPIVACAINE HYDROCHLORIDE
     Indication: ANAESTHESIA
     Route: 030
     Dates: start: 20180910, end: 20180910
  5. EPHEDRINE. [Suspect]
     Active Substance: EPHEDRINE
     Indication: PROCEDURAL HYPOTENSION
     Route: 042
     Dates: start: 20180910, end: 20180910

REACTIONS (1)
  - Anaphylactic reaction [Recovered/Resolved]

NARRATIVE: CASE EVENT DATE: 20180910
